FAERS Safety Report 4819098-1 (Version None)
Quarter: 2005Q4

REPORT INFORMATION
  Report Type: 
  Country: None (occurrence: None)
  Receive Date: 20051101
  Receipt Date: 20051101
  Transmission Date: 20060501
  Serious: Yes (Other)
  Sender: FDA-Public Use
  Company Number: None

PATIENT
  Age: 58 Year
  Sex: Male
  Weight: 90.7 kg

DRUGS (1)
  1. SEVELAMER [Suspect]
     Indication: HYPERPHOSPHATAEMIA
     Dosage: 400 MG BEFORE MEALS
     Dates: start: 20041101, end: 20050201

REACTIONS (1)
  - DIARRHOEA [None]
